FAERS Safety Report 5520557-7 (Version None)
Quarter: 2007Q4

REPORT INFORMATION
  Report Type: 
  Country: None (occurrence: None)
  Receive Date: 20071119
  Receipt Date: 20071113
  Transmission Date: 20080405
  Serious: Yes (Disabling, Other)
  Sender: FDA-Public Use
  Company Number: ES-WYE-G00613407

PATIENT
  Age: 45 Year
  Sex: Male

DRUGS (1)
  1. DOBUPAL [Suspect]
     Indication: DEPRESSION
     Dosage: 150 MG PER DAY
     Route: 048
     Dates: start: 20060901, end: 20070901

REACTIONS (3)
  - MUSCLE CONTRACTIONS INVOLUNTARY [None]
  - MUSCLE SPASMS [None]
  - WALKING DISABILITY [None]
